FAERS Safety Report 8457872-3 (Version None)
Quarter: 2012Q2

REPORT INFORMATION
  Report Type: 
  Country: None (occurrence: None)
  Receive Date: 20120622
  Receipt Date: 20120607
  Transmission Date: 20120825
  Serious: Yes (Hospitalization)
  Sender: FDA-Public Use
  Company Number: CA-JNJFOC-20120608729

PATIENT
  Sex: Female

DRUGS (7)
  1. INVEGA SUSTENNA [Suspect]
     Dosage: 3-MAR
     Route: 030
  2. INVEGA SUSTENNA [Suspect]
     Dosage: 14-MAR
     Route: 030
  3. INVEGA SUSTENNA [Suspect]
     Indication: PRODUCT USED FOR UNKNOWN INDICATION
     Dosage: 04-APR
     Route: 030
  4. ESCITALOPRAM [Concomitant]
     Route: 065
  5. INVEGA SUSTENNA [Suspect]
     Dosage: 24-MAY
     Route: 030
  6. INVEGA SUSTENNA [Suspect]
     Dosage: 24-APR
     Route: 030
  7. CLONAZEPAM [Concomitant]
     Route: 065

REACTIONS (3)
  - DRUG INEFFECTIVE [None]
  - HOSPITALISATION [None]
  - INJECTION SITE MASS [None]
